FAERS Safety Report 22361386 (Version 9)
Quarter: 2025Q2

REPORT INFORMATION
  Report Type: Spontaneous
  Country: US (occurrence: US)
  Receive Date: 20230524
  Receipt Date: 20250425
  Transmission Date: 20250717
  Serious: Yes (Other)
  Sender: PFIZER
  Company Number: US-PFIZER INC-202300197457

PATIENT
  Age: 78 Year
  Sex: Female

DRUGS (3)
  1. NARDIL [Suspect]
     Active Substance: PHENELZINE SULFATE
     Indication: Panic attack
     Dosage: TAKING ALL 3 PILLS IN THE EVENING ALL TOGETHER
     Dates: start: 1982
  2. NARDIL [Suspect]
     Active Substance: PHENELZINE SULFATE
  3. KLONOPIN [Concomitant]
     Active Substance: CLONAZEPAM

REACTIONS (11)
  - Nephrolithiasis [Unknown]
  - Uterine leiomyoma [Unknown]
  - Tooth disorder [Unknown]
  - Cataract [Unknown]
  - Off label use [Unknown]
  - Drug ineffective for unapproved indication [Unknown]
  - Inappropriate schedule of product administration [Unknown]
  - Head discomfort [Unknown]
  - Anxiety [Unknown]
  - Hypertension [Unknown]
  - Uterine polyp [Unknown]
